FAERS Safety Report 6294798-8 (Version None)
Quarter: 2009Q3

REPORT INFORMATION
  Report Type: 
  Country: None (occurrence: None)
  Receive Date: 20090803
  Receipt Date: 20090723
  Transmission Date: 20100115
  Serious: Yes (Hospitalization)
  Sender: FDA-Public Use
  Company Number: HU-ELI_LILLY_AND_COMPANY-HU200907005087

PATIENT
  Age: 40 Year
  Sex: Female

DRUGS (5)
  1. XIGRIS [Suspect]
     Indication: SEPSIS
     Route: 042
     Dates: start: 20090721
  2. MERONEM [Concomitant]
     Dosage: 1 G, 3/D
     Route: 065
     Dates: start: 20090721
  3. COLOMYCIN [Concomitant]
     Dosage: 1000000 IU, 3/D
     Route: 065
     Dates: start: 20090721
  4. VANCOMYCIN [Concomitant]
     Dosage: 1 G, 2/D
     Route: 065
     Dates: start: 20090721
  5. HEPARIN [Concomitant]
     Dosage: IN A PROPHYLACTIC DOSE
     Route: 065

REACTIONS (2)
  - PLATELET COUNT DECREASED [None]
  - WHITE BLOOD CELL COUNT DECREASED [None]
